FAERS Safety Report 5190994-1 (Version None)
Quarter: 2006Q4

REPORT INFORMATION
  Report Type: 
  Country: None (occurrence: None)
  Receive Date: 20061224
  Receipt Date: 20061212
  Transmission Date: 20070319
  Serious: Yes (Hospitalization)
  Sender: FDA-Public Use
  Company Number: US-ELI_LILLY_AND_COMPANY-US200612004151

PATIENT
  Age: 62 Year
  Sex: Female

DRUGS (1)
  1. FORTEO [Suspect]
     Indication: OSTEOPOROSIS
     Dosage: UNK, UNKNOWN
     Dates: start: 20060101

REACTIONS (11)
  - ABDOMINAL PAIN [None]
  - BREAST DISCOMFORT [None]
  - DYSPNOEA [None]
  - ERYTHEMA [None]
  - FEAR [None]
  - HEADACHE [None]
  - INJECTION SITE IRRITATION [None]
  - OEDEMA PERIPHERAL [None]
  - PHARMACEUTICAL PRODUCT COMPLAINT [None]
  - THROAT TIGHTNESS [None]
  - VACCINATION COMPLICATION [None]
